FAERS Safety Report 6298315-8 (Version None)
Quarter: 2009Q3

REPORT INFORMATION
  Report Type: 
  Country: None (occurrence: None)
  Receive Date: 20090805
  Receipt Date: 20090724
  Transmission Date: 20100115
  Serious: Yes (Other)
  Sender: FDA-Public Use
  Company Number: PHHY2008NZ19375

PATIENT
  Sex: Female

DRUGS (1)
  1. CLOZARIL [Suspect]
     Indication: SCHIZOPHRENIA
     Dosage: 100 MG MORNING AND 400 MG NIGHT
     Dates: start: 20070423

REACTIONS (5)
  - ANTIPSYCHOTIC DRUG LEVEL INCREASED [None]
  - BLOOD UREA INCREASED [None]
  - GLOMERULAR FILTRATION RATE DECREASED [None]
  - INCONTINENCE [None]
  - RENAL IMPAIRMENT [None]
